FAERS Safety Report 7035408-1 (Version None)
Quarter: 2010Q4

REPORT INFORMATION
  Report Type: 
  Country: None (occurrence: None)
  Receive Date: 20101008
  Receipt Date: 20100929
  Transmission Date: 20110411
  Serious: Yes (Death)
  Sender: FDA-Public Use
  Company Number: CA-PFIZER INC-2010123651

PATIENT
  Sex: Female

DRUGS (2)
  1. ZELDOX [Suspect]
     Dosage: 20 MG, 1X/DAY
  2. LOXAPAC [Concomitant]
     Dosage: 30 MG, 1X/DAY

REACTIONS (1)
  - DEATH [None]
